FAERS Safety Report 25947659 (Version 1)
Quarter: 2025Q4

REPORT INFORMATION
  Report Type: Spontaneous
  Country: BR (occurrence: BR)
  Receive Date: 20251022
  Receipt Date: 20251022
  Transmission Date: 20260117
  Serious: Yes (Disabling, Other)
  Sender: EMD SERONO INC
  Company Number: BR-Merck Healthcare KGaA-2025052189

PATIENT
  Sex: Male

DRUGS (2)
  1. EUTHYROX [Suspect]
     Active Substance: LEVOTHYROXINE SODIUM
     Indication: Thyroid disorder
     Dosage: 1 TABLET IN THE MORNING ON AN EMPTY STOMACH, 30 MIN BEFORE BREAKFAST AND TAKE THE OTHER TABLETS
  2. GLIFAGE [Suspect]
     Active Substance: METFORMIN HYDROCHLORIDE
     Indication: Type 2 diabetes mellitus
     Dosage: 2 TABLETS IN THE MORNING; 2 TABLETS AT LUNCH AND 2 TABLETS AT NIGHT 7PM

REACTIONS (6)
  - Visual impairment [Unknown]
  - Diabetes mellitus [Not Recovered/Not Resolved]
  - Liver disorder [Unknown]
  - Fall [Unknown]
  - Gait disturbance [Unknown]
  - Intentional overdose [Unknown]
